FAERS Safety Report 14638420 (Version 1)
Quarter: 2018Q1

REPORT INFORMATION
  Report Type: Spontaneous
  Country: US (occurrence: US)
  Receive Date: 20180314
  Receipt Date: 20180314
  Transmission Date: 20180509
  Serious: No
  Sender: FDA-Public Use
  Company Number: None

PATIENT
  Age: 68 Year
  Sex: Female
  Weight: 63.05 kg

DRUGS (1)
  1. XIIDRA [Suspect]
     Active Substance: LIFITEGRAST

REACTIONS (6)
  - Dysgeusia [None]
  - Pain [None]
  - Erythema [None]
  - Vision blurred [None]
  - Swelling [None]
  - Ocular hyperaemia [None]

NARRATIVE: CASE EVENT DATE: 20180208
